FAERS Safety Report 7476851-6 (Version None)
Quarter: 2011Q2

REPORT INFORMATION
  Report Type: 
  Country: None (occurrence: None)
  Receive Date: 20110512
  Receipt Date: 20110504
  Transmission Date: 20111010
  Serious: Yes (Death, Other)
  Sender: FDA-Public Use
  Company Number: US-ELI_LILLY_AND_COMPANY-US201105003364

PATIENT

DRUGS (2)
  1. REVATIO [Concomitant]
     Indication: PULMONARY ARTERIAL HYPERTENSION
  2. TADALAFIL [Suspect]
     Indication: PULMONARY ARTERIAL HYPERTENSION
     Dosage: 40 MG, QD

REACTIONS (1)
  - POST PROCEDURAL COMPLICATION [None]
